FAERS Safety Report 8083071 (Version 3)
Quarter: 2013Q4

REPORT INFORMATION
  Report Type: Spontaneous
  Country: CA (occurrence: CA)
  Receive Date: 20110809
  Receipt Date: 20131106
  Transmission Date: 20140711
  Serious: Yes (Hospitalization, Other)
  Sender: FDA-Public Use
  Company Number: CA-AMGEN-CANSP2011031067

PATIENT
  Age: 88 Year
  Sex: Female
  Weight: 68 kg

DRUGS (5)
  1. ENBREL [Suspect]
     Indication: RHEUMATOID ARTHRITIS
     Dosage: 50 MG, QWK
     Route: 065
     Dates: start: 20080909, end: 201104
  2. CHEMOTHERAPEUTICS [Suspect]
     Indication: HODGKIN^S DISEASE
     Dosage: UNK
     Route: 065
  3. METHOTREXATE [Concomitant]
     Dosage: UNK
  4. PREDNISONE [Concomitant]
     Dosage: UNK
  5. TYLENOL                            /00020001/ [Concomitant]
     Dosage: UNK

REACTIONS (7)
  - Groin pain [Unknown]
  - Gastrointestinal pain [Unknown]
  - Hodgkin^s disease [Unknown]
  - Blindness [Unknown]
  - Neoplasm [Unknown]
  - Macular degeneration [Unknown]
  - Glaucoma [Unknown]
